FAERS Safety Report 10243967 (Version 1)
Quarter: 2014Q2

REPORT INFORMATION
  Report Type: Spontaneous
  Country: MY (occurrence: MY)
  Receive Date: 20140618
  Receipt Date: 20140618
  Transmission Date: 20141212
  Serious: Yes (Other)
  Sender: FDA-Public Use
  Company Number: MY-JNJFOC-20140610371

PATIENT
  Age: 48 Year
  Sex: Female

DRUGS (3)
  1. INFLIXIMAB, RECOMBINANT [Suspect]
     Indication: RHEUMATOID ARTHRITIS
     Dosage: HAVE RECEIVED 6 DOSES
     Route: 042
  2. ETANERCEPT [Suspect]
     Indication: RHEUMATOID ARTHRITIS
     Route: 065
  3. RITUXIMAB [Suspect]
     Indication: RHEUMATOID ARTHRITIS
     Dosage: RECEIVED TWO DOSES
     Route: 065

REACTIONS (1)
  - Tuberculosis [Recovering/Resolving]
